FAERS Safety Report 21061475 (Version 1)
Quarter: 2022Q3

REPORT INFORMATION
  Report Type: Spontaneous
  Country: FR (occurrence: FR)
  Receive Date: 20220709
  Receipt Date: 20220709
  Transmission Date: 20221026
  Serious: Yes (Hospitalization, Other)
  Sender: FDA-Public Use
  Company Number: None

PATIENT
  Age: 46 Year
  Sex: Female

DRUGS (1)
  1. TRAMADOL HYDROCHLORIDE [Suspect]
     Active Substance: TRAMADOL HYDROCHLORIDE
     Indication: Product used for unknown indication
     Dosage: 300 MILLIGRAM
     Route: 065
     Dates: start: 20220518, end: 20220518

REACTIONS (6)
  - Poisoning deliberate [Recovered/Resolved]
  - Hypoglycaemia [Recovered/Resolved]
  - Miosis [Recovered/Resolved]
  - Coma [Recovered/Resolved]
  - Bradypnoea [Recovered/Resolved]
  - Intentional overdose [Unknown]

NARRATIVE: CASE EVENT DATE: 20220518
